FAERS Safety Report 7374400-4 (Version None)
Quarter: 2011Q1

REPORT INFORMATION
  Report Type: 
  Country: None (occurrence: None)
  Receive Date: 20110316
  Receipt Date: 20110304
  Transmission Date: 20110831
  Serious: Yes (Other)
  Sender: FDA-Public Use
  Company Number: 028813

PATIENT

DRUGS (1)
  1. VIMPAT [Suspect]
     Dosage: INTRAVEOUS (NOT OTHERWISE SPECIFIED)
     Route: 042

REACTIONS (2)
  - OFF LABEL USE [None]
  - STATUS EPILEPTICUS [None]
